FAERS Safety Report 4341429-X (Version None)
Quarter: 2004Q2

REPORT INFORMATION
  Report Type: 
  Country: None (occurrence: None)
  Receive Date: 20040415
  Receipt Date: 20040405
  Transmission Date: 20050107
  Serious: Yes (Life-Threatening, Other)
  Sender: FDA-Public Use
  Company Number: 2004023352

PATIENT
  Age: 50 Year
  Sex: Female
  Weight: 70 kg

DRUGS (2)
  1. DILANTIN INJ [Suspect]
     Indication: STATUS EPILEPTICUS
     Dosage: 1000 MG (DAILY), INTRAVENOUS
     Route: 042
     Dates: start: 20031205, end: 20031205
  2. DIAZEPAM [Concomitant]

REACTIONS (1)
  - HYPOTENSION [None]
